FAERS Safety Report 21075017 (Version 1)
Quarter: 2022Q3

REPORT INFORMATION
  Report Type: Report from Study
  Country: GB (occurrence: FI)
  Receive Date: 20220713
  Receipt Date: 20220713
  Transmission Date: 20221026
  Serious: Yes (Other)
  Sender: FDA-Public Use
  Company Number: FI-MYLANLABS-2022M1038670

PATIENT
  Age: 45 Year
  Sex: Male

DRUGS (6)
  1. METHOTREXATE [Suspect]
     Active Substance: METHOTREXATE
     Indication: Vasculitis
     Route: 065
     Dates: start: 20220520
  2. METHOTREXATE [Suspect]
     Active Substance: METHOTREXATE
     Indication: Vasculitis
     Route: 065
     Dates: end: 202205
  3. METHOTREXATE [Suspect]
     Active Substance: METHOTREXATE
     Indication: Vasculitis
     Route: 065
     Dates: start: 20220520
  4. CLOZAPINE [Concomitant]
     Active Substance: CLOZAPINE
     Indication: Schizophrenia
     Route: 065
     Dates: end: 202205
  5. CLOZAPINE [Concomitant]
     Active Substance: CLOZAPINE
     Indication: Schizophrenia
     Route: 065
     Dates: start: 20220520
  6. CLOZAPINE [Concomitant]
     Active Substance: CLOZAPINE
     Indication: Schizophrenia
     Route: 065

REACTIONS (6)
  - Neutropenia [Recovered/Resolved]
  - Product use in unapproved indication [Unknown]
  - Diarrhoea [Unknown]
  - White blood cell disorder [Recovering/Resolving]
  - Eosinophilia [Recovering/Resolving]
  - Lymphocyte count abnormal [Recovered/Resolved]

NARRATIVE: CASE EVENT DATE: 20220501
